FAERS Safety Report 25587071 (Version 1)
Quarter: 2025Q3

REPORT INFORMATION
  Report Type: Spontaneous
  Country: US (occurrence: US)
  Receive Date: 20250721
  Receipt Date: 20250721
  Transmission Date: 20251021
  Serious: No
  Sender: Phathom Pharmaceuticals
  Company Number: US-PHATHOM PHARMACEUTICALS INC.-2025PHT01065

PATIENT
  Age: 82 Year
  Sex: Female

DRUGS (3)
  1. VOQUEZNA DUAL PAK [Suspect]
     Active Substance: AMOXICILLIN\VONOPRAZAN FUMARATE
     Dosage: 1 DOSAGE FORM, 3X/DAY
     Route: 048
     Dates: start: 20250430, end: 20250502
  2. LISINOPRIL [Concomitant]
     Active Substance: LISINOPRIL
  3. ATENOLOL [Concomitant]
     Active Substance: ATENOLOL

REACTIONS (1)
  - Peripheral swelling [Not Recovered/Not Resolved]

NARRATIVE: CASE EVENT DATE: 20250101
